FAERS Safety Report 7203665-4 (Version None)
Quarter: 2010Q4

REPORT INFORMATION
  Report Type: 
  Country: None (occurrence: None)
  Receive Date: 20101230
  Receipt Date: 20101221
  Transmission Date: 20110411
  Serious: Yes (Hospitalization, Other)
  Sender: FDA-Public Use
  Company Number: FR-PFIZER INC-2010176201

PATIENT
  Age: 55 Year
  Sex: Female

DRUGS (7)
  1. RELPAX [Suspect]
     Indication: HEADACHE
     Dosage: 20 TO 80 MG PER DAY
     Route: 048
     Dates: start: 20070101, end: 20101029
  2. METFORMIN HYDROCHLORIDE [Concomitant]
  3. DIAMICRON [Concomitant]
  4. VERAPAMIL [Concomitant]
  5. LAROXYL [Concomitant]
  6. LEXOMIL [Concomitant]
  7. IMOVANE [Concomitant]

REACTIONS (4)
  - ASTHENIA [None]
  - CARDIO-RESPIRATORY ARREST [None]
  - LACTIC ACIDOSIS [None]
  - PRINZMETAL ANGINA [None]
